FAERS Safety Report 17661431 (Version 1)
Quarter: 2020Q2

REPORT INFORMATION
  Report Type: Spontaneous
  Country: US (occurrence: US)
  Receive Date: 20200413
  Receipt Date: 20200413
  Transmission Date: 20200713
  Serious: No
  Sender: FDA-Public Use
  Company Number: US-TEVA-2020-US-1220071

PATIENT
  Age: 48 Year
  Sex: Male

DRUGS (11)
  1. SYNRIBO [Suspect]
     Active Substance: OMACETAXINE MEPESUCCINATE
     Indication: CHRONIC MYELOID LEUKAEMIA
     Dosage: DOSAGE: 2.74MG/0.78ML, 14 DAYS/28 DAY CYCLE
     Route: 058
     Dates: start: 20200325
  2. LASIX [Concomitant]
     Active Substance: FUROSEMIDE
  3. SEROQUEL [Concomitant]
     Active Substance: QUETIAPINE FUMARATE
  4. ABILIFY [Concomitant]
     Active Substance: ARIPIPRAZOLE
  5. ETODOLAC. [Concomitant]
     Active Substance: ETODOLAC
  6. REMERON [Concomitant]
     Active Substance: MIRTAZAPINE
  7. LEXAPRO [Concomitant]
     Active Substance: ESCITALOPRAM OXALATE
  8. TRAZODONE [Concomitant]
     Active Substance: TRAZODONE HYDROCHLORIDE
  9. OMEPRAZOLE. [Concomitant]
     Active Substance: OMEPRAZOLE
  10. ALLOPURINOL. [Concomitant]
     Active Substance: ALLOPURINOL
  11. ATIVAN [Concomitant]
     Active Substance: LORAZEPAM

REACTIONS (3)
  - Product dose omission [Unknown]
  - Injection site erythema [Unknown]
  - Tenderness [Unknown]

NARRATIVE: CASE EVENT DATE: 20200328
